FAERS Safety Report 19190206 (Version 1)
Quarter: 2021Q2

REPORT INFORMATION
  Report Type: Spontaneous
  Country: US (occurrence: US)
  Receive Date: 20210428
  Receipt Date: 20210428
  Transmission Date: 20210717
  Serious: Yes (Disabling)
  Sender: FDA-Public Use
  Company Number: US-LEITERS-2109913

PATIENT
  Age: 68 Year
  Sex: Female
  Weight: 65 kg

DRUGS (2)
  1. LIDOCAINE HCL / PHENYLEPHRINE HCL [Concomitant]
     Route: 047
     Dates: start: 20210412, end: 20210412
  2. MOXIFLOXACIN 1 MG/ML [Suspect]
     Active Substance: MOXIFLOXACIN
     Indication: CATARACT
     Route: 047
     Dates: start: 20210412, end: 20210412

REACTIONS (1)
  - Toxic anterior segment syndrome [Recovering/Resolving]

NARRATIVE: CASE EVENT DATE: 20210414
